FAERS Safety Report 10062523 (Version 1)
Quarter: 2014Q1

REPORT INFORMATION
  Report Type: Spontaneous
  Country: US (occurrence: None)
  Receive Date: 20140313
  Receipt Date: 20140313
  Transmission Date: 20141002
  Serious: No
  Sender: FDA-Public Use
  Company Number: 1000050801

PATIENT
  Age: 77 Year
  Sex: Male

DRUGS (3)
  1. DALIRESP (ROFLUMILAST) [Suspect]
     Dosage: - STOPPED THERAPY DATES
  2. RAMIPRIL [Concomitant]
  3. MUCINEX [Concomitant]

REACTIONS (1)
  - Blood pressure increased [None]
